FAERS Safety Report 8175205-7 (Version None)
Quarter: 2012Q1

REPORT INFORMATION
  Report Type: 
  Country: None (occurrence: None)
  Receive Date: 20120229
  Receipt Date: 20120222
  Transmission Date: 20120608
  Serious: Yes (Other)
  Sender: FDA-Public Use
  Company Number: PHHY2012DK016334

PATIENT
  Sex: Female
  Weight: 56 kg

DRUGS (2)
  1. NORETHINDRONE AND ESTRADIOL [Suspect]
     Indication: OSTEOPOROSIS
     Dosage: 1 DF, QD
     Route: 048
     Dates: start: 20100809
  2. VAGIFEM [Suspect]
     Indication: MENOPAUSAL SYMPTOMS
     Dosage: 25 MG, QD
     Dates: start: 20110901, end: 20111101

REACTIONS (2)
  - EXTRASYSTOLES [None]
  - ATRIAL FIBRILLATION [None]
